FAERS Safety Report 21098051 (Version 1)
Quarter: 2022Q3

REPORT INFORMATION
  Report Type: Spontaneous
  Country: US (occurrence: US)
  Receive Date: 20220719
  Receipt Date: 20220719
  Transmission Date: 20221027
  Serious: Yes (Hospitalization, Other)
  Sender: FDA-Public Use
  Company Number: US-JNJFOC-20220720011

PATIENT
  Sex: Female

DRUGS (1)
  1. HALOPERIDOL [Suspect]
     Active Substance: HALOPERIDOL
     Indication: Product used for unknown indication
     Route: 065

REACTIONS (6)
  - Crohn^s disease [Unknown]
  - Psychotic symptom [Unknown]
  - Mania [Unknown]
  - Mood swings [Unknown]
  - Hypertension [Unknown]
  - Extrapyramidal disorder [Unknown]
